FAERS Safety Report 9525104 (Version 2)
Quarter: 2013Q4

REPORT INFORMATION
  Report Type: Spontaneous
  Country: US (occurrence: US)
  Receive Date: 20130916
  Receipt Date: 20131009
  Transmission Date: 20140711
  Serious: Yes (Other)
  Sender: FDA-Public Use
  Company Number: US-BAYER-2013-111375

PATIENT
  Age: 41 Year
  Sex: Female
  Weight: 60.32 kg

DRUGS (1)
  1. MIRENA [Suspect]
     Indication: CONTRACEPTION
     Dosage: 20 MCG/24HR, CONT
     Route: 015
     Dates: start: 20120905, end: 20130912

REACTIONS (3)
  - Uterine perforation [Recovering/Resolving]
  - Device dislocation [Recovering/Resolving]
  - Procedural pain [Recovering/Resolving]
